FAERS Safety Report 8651187 (Version 2)
Quarter: 2012Q4

REPORT INFORMATION
  Report Type: 
  Country: US (occurrence: US)
  Receive Date: 20120705
  Receipt Date: 20120905
  Transmission Date: 20130627
  Serious: Yes (Other)
  Sender: FDA-Public Use
  Company Number: US-ASTRAZENECA-2012SE43075

PATIENT
  Age: 62 Year
  Sex: Female
  Weight: 86.2 kg

DRUGS (8)
  1. SYMBICORT [Suspect]
     Indication: CHRONIC OBSTRUCTIVE PULMONARY DISEASE
     Dosage: 80/4.5 MCG TWO TIMES A DAY
     Route: 055
     Dates: start: 2009
  2. NEXIUM [Suspect]
     Indication: GASTROOESOPHAGEAL REFLUX DISEASE
     Route: 048
     Dates: start: 2007
  3. NEXIUM [Suspect]
     Indication: GASTROOESOPHAGEAL REFLUX DISEASE
     Route: 048
     Dates: start: 2008
  4. PLAVIX [Concomitant]
     Route: 048
     Dates: start: 20090410
  5. VYTORIN [Concomitant]
     Indication: BLOOD CHOLESTEROL INCREASED
     Dosage: 10-40 MG DAILY
     Route: 048
     Dates: start: 2010
  6. ASPIRIN [Concomitant]
     Route: 048
     Dates: start: 20090410
  7. COREG CR [Concomitant]
     Route: 048
     Dates: start: 20090410
  8. XOPENEX [Concomitant]
     Route: 055
     Dates: start: 20090410

REACTIONS (8)
  - Cataract [Recovered/Resolved]
  - Weight increased [Not Recovered/Not Resolved]
  - Chapped lips [Not Recovered/Not Resolved]
  - Breath sounds abnormal [Not Recovered/Not Resolved]
  - Chest discomfort [Not Recovered/Not Resolved]
  - Pollakiuria [Unknown]
  - Arthropathy [Unknown]
  - Off label use [Unknown]
